FAERS Safety Report 25342579 (Version 2)
Quarter: 2025Q3

REPORT INFORMATION
  Report Type: Spontaneous
  Country: US (occurrence: US)
  Receive Date: 20250521
  Receipt Date: 20250820
  Transmission Date: 20251020
  Serious: No
  Sender: CATALYST PHARMA
  Company Number: US-CATALYST PHARMACEUTICALS-US-CATA-25-00564

PATIENT
  Sex: Male
  Weight: 47.537 kg

DRUGS (9)
  1. AGAMREE [Suspect]
     Active Substance: VAMOROLONE
     Indication: Duchenne muscular dystrophy
     Dosage: 5.3 ML DAILY
     Route: 048
     Dates: start: 20240619
  2. CALCIUM [Concomitant]
     Active Substance: CALCIUM
     Indication: Hypovitaminosis
     Dosage: 600MG DAILY
     Route: 065
  3. FAMOTIDINE [Concomitant]
     Active Substance: FAMOTIDINE
     Indication: Gastrointestinal disorder prophylaxis
     Dosage: 20MG DAILY
     Route: 065
  4. LISINOPRIL [Concomitant]
     Active Substance: LISINOPRIL
     Indication: Cardiovascular event prophylaxis
     Dosage: 5MG DAILY
     Route: 065
  5. METAMUCIL FIBRE [Concomitant]
     Indication: Constipation
     Dosage: DAILY
     Route: 048
  6. NORDITROPIN [Concomitant]
     Active Substance: SOMATROPIN
     Indication: Short stature
     Dosage: 30MG SUBCUTANEOUSLY DAILY
     Route: 058
  7. TESTOSTERONE CYPIONATE [Concomitant]
     Active Substance: TESTOSTERONE CYPIONATE
     Indication: Short stature
     Dosage: 200MG IM WEEKLY
     Route: 030
  8. TOPIRAMATE [Concomitant]
     Active Substance: TOPIRAMATE
     Indication: Epilepsy
     Dosage: 100MG TWICE A DAY
     Route: 065
  9. VITAMIN D3 [Concomitant]
     Active Substance: CHOLECALCIFEROL
     Indication: Hypovitaminosis
     Dosage: 1000 UNITS DAILY
     Route: 065

REACTIONS (1)
  - Weight increased [Not Recovered/Not Resolved]
